FAERS Safety Report 4661014-X (Version None)
Quarter: 2005Q2

REPORT INFORMATION
  Report Type: 
  Country: None (occurrence: None)
  Receive Date: 20050511
  Receipt Date: 20050503
  Transmission Date: 20051028
  Serious: Yes (Other)
  Sender: FDA-Public Use
  Company Number: 2005070363

PATIENT
  Age: 57 Year
  Sex: Female
  Weight: 77.1115 kg

DRUGS (11)
  1. CELEBREX [Suspect]
     Indication: ARTHRITIS
     Dosage: ORAL
     Route: 048
  2. BEXTRA [Suspect]
     Indication: ARTHRITIS
     Dosage: 20 MG (20 MG, 1 IN 1 D), ORAL
     Route: 048
  3. NITROGLYCERIN [Suspect]
     Indication: ILL-DEFINED DISORDER
     Dosage: ORAL
     Route: 048
  4. ATENOLOL [Concomitant]
  5. GABAPENTIN [Concomitant]
  6. ULTRACET [Concomitant]
  7. ESOMEPRAZOLE (ESOMEPRAZOLE) [Concomitant]
  8. PROMETHAZINE [Concomitant]
  9. CETIRIZINE HCL [Concomitant]
  10. SUMATRIPTAN SUCCINATE [Concomitant]
  11. NAPROXEN [Concomitant]

REACTIONS (12)
  - ABDOMINAL PAIN UPPER [None]
  - BLOOD TEST ABNORMAL [None]
  - DIZZINESS [None]
  - EATING DISORDER [None]
  - GASTRIC ULCER [None]
  - INFLUENZA [None]
  - NAIL DISCOLOURATION [None]
  - NAIL DISORDER [None]
  - NASAL ULCER [None]
  - NAUSEA [None]
  - STAPHYLOCOCCAL INFECTION [None]
  - WRIST FRACTURE [None]
